FAERS Safety Report 5205055-2 (Version None)
Quarter: 2007Q1

REPORT INFORMATION
  Report Type: 
  Country: None (occurrence: None)
  Receive Date: 20070110
  Receipt Date: 20061011
  Transmission Date: 20070707
  Serious: No
  Sender: FDA-Public Use
  Company Number: US-BRISTOL-MYERS SQUIBB COMPANY-13540828

PATIENT
  Age: 10 Year
  Weight: 56 kg

DRUGS (4)
  1. ABILIFY [Suspect]
     Indication: MAJOR DEPRESSION
     Dosage: DOSE CURRENTLY INCREASED TO 10 MG.
  2. BENADRYL [Concomitant]
  3. CLONIDINE [Concomitant]
  4. VITAMIN E [Concomitant]

REACTIONS (4)
  - HEADACHE [None]
  - STRABISMUS [None]
  - TIC [None]
  - TREMOR [None]
